FAERS Safety Report 13976041 (Version 1)
Quarter: 2017Q3

REPORT INFORMATION
  Report Type: Report from Study
  Country: US (occurrence: US)
  Receive Date: 20170915
  Receipt Date: 20170915
  Transmission Date: 20171128
  Serious: No
  Sender: FDA-Public Use
  Company Number: PHEH2017US029429

PATIENT
  Age: 59 Year
  Sex: Male

DRUGS (1)
  1. COSENTYX [Suspect]
     Active Substance: SECUKINUMAB
     Indication: PSORIASIS
     Dosage: 300 MG, QW
     Route: 058

REACTIONS (4)
  - Nasal congestion [Unknown]
  - Malaise [Unknown]
  - Oropharyngeal pain [Unknown]
  - Paranasal sinus discomfort [Recovered/Resolved with Sequelae]

NARRATIVE: CASE EVENT DATE: 20170831
